FAERS Safety Report 4802581-2 (Version None)
Quarter: 2005Q4

REPORT INFORMATION
  Report Type: 
  Country: None (occurrence: None)
  Receive Date: 20051011
  Receipt Date: 20050927
  Transmission Date: 20060501
  Serious: Yes (Hospitalization)
  Sender: FDA-Public Use
  Company Number: 2005BI016267

PATIENT
  Age: 58 Year
  Sex: Female
  Weight: 49.4421 kg

DRUGS (9)
  1. AVONEX [Suspect]
     Indication: MULTIPLE SCLEROSIS
     Dosage: 30 UG; QW; IM
     Route: 030
     Dates: start: 20010601, end: 20020101
  2. AVONEX [Suspect]
     Indication: MULTIPLE SCLEROSIS
     Dosage: 30 UG; QW; IM
     Route: 030
     Dates: start: 20050401
  3. SYNTHROID [Concomitant]
  4. BACLOFEN [Concomitant]
  5. TRILEPTAL [Concomitant]
  6. MIRTAZAPINE [Concomitant]
  7. DITROPAN [Concomitant]
  8. XANAX [Concomitant]
  9. DILTIAZEM [Concomitant]

REACTIONS (13)
  - ABASIA [None]
  - ANXIETY [None]
  - APHASIA [None]
  - BURNING SENSATION [None]
  - CONDITION AGGRAVATED [None]
  - DEPRESSION [None]
  - HEADACHE [None]
  - HEART RATE INCREASED [None]
  - HYPERTENSION [None]
  - LOCALISED INFECTION [None]
  - PAIN IN EXTREMITY [None]
  - STRESS [None]
  - THERMAL BURN [None]
